FAERS Safety Report 8962122 (Version 1)
Quarter: 2012Q4

REPORT INFORMATION
  Report Type: 
  Country: US (occurrence: US)
  Receive Date: 20121212
  Receipt Date: 20121212
  Transmission Date: 20130627
  Serious: Yes (Hospitalization)
  Sender: FDA-Public Use
  Company Number: US-ENDO PHARMACEUTICALS INC.-TRIP20120032

PATIENT
  Sex: Female
  Weight: 3.18 kg

DRUGS (1)
  1. TRI-PREVIFEM TABLETS [Suspect]
     Indication: MATERNAL EXPOSURE DURING PREGNANCY
     Dosage: N/A
     Route: 064
     Dates: start: 2011, end: 20111103

REACTIONS (2)
  - Neonatal aspiration [Recovered/Resolved]
  - Foetal hypokinesia [Recovered/Resolved]
